FAERS Safety Report 12860296 (Version 1)
Quarter: 2016Q4

REPORT INFORMATION
  Report Type: Spontaneous
  Country: US (occurrence: US)
  Receive Date: 20161019
  Receipt Date: 20161019
  Transmission Date: 20170207
  Serious: No
  Sender: FDA-Public Use
  Company Number: US-BEH-2016074340

PATIENT
  Sex: Female
  Weight: 76.37 kg

DRUGS (14)
  1. SODIUM [Concomitant]
     Active Substance: SODIUM
  2. LAMICTAL [Concomitant]
     Active Substance: LAMOTRIGINE
  3. ZOFRAN [Concomitant]
     Active Substance: ONDANSETRON HYDROCHLORIDE
  4. VYVANSE [Concomitant]
     Active Substance: LISDEXAMFETAMINE DIMESYLATE
  5. NORETHINDRONE                      /00044901/ [Concomitant]
     Active Substance: NORETHINDRONE
  6. HYDROXYZINE [Concomitant]
     Active Substance: HYDROXYZINE\HYDROXYZINE HYDROCHLORIDE
  7. EPIPEN [Concomitant]
     Active Substance: EPINEPHRINE
  8. DANAZOL. [Concomitant]
     Active Substance: DANAZOL
  9. CELEXA [Concomitant]
     Active Substance: CITALOPRAM HYDROBROMIDE
  10. ZANTAC [Concomitant]
     Active Substance: RANITIDINE HYDROCHLORIDE
  11. BERINERT [Suspect]
     Active Substance: HUMAN C1-ESTERASE INHIBITOR
     Indication: HEREDITARY ANGIOEDEMA
     Dosage: 2000 IU, PRN
     Route: 042
     Dates: start: 20160701
  12. STERILE WATER [Concomitant]
     Active Substance: WATER
  13. XANAX [Concomitant]
     Active Substance: ALPRAZOLAM
  14. SODIUM CHLORIDE. [Concomitant]
     Active Substance: SODIUM CHLORIDE

REACTIONS (1)
  - Sinusitis [Unknown]
